FAERS Safety Report 9831835 (Version 1)
Quarter: 2014Q1

REPORT INFORMATION
  Report Type: Report from Study
  Country: US (occurrence: US)
  Receive Date: 20140121
  Receipt Date: 20140121
  Transmission Date: 20141002
  Serious: Yes (Hospitalization)
  Sender: FDA-Public Use
  Company Number: US-JNJFOC-20140106820

PATIENT
  Age: 82 Year
  Sex: Male
  Weight: 81 kg

DRUGS (1)
  1. INFLIXIMAB, RECOMBINANT [Suspect]
     Indication: COLITIS ULCERATIVE
     Route: 042

REACTIONS (6)
  - Pancytopenia [Unknown]
  - Lung adenocarcinoma metastatic [Unknown]
  - Anaemia [Recovering/Resolving]
  - Malnutrition [Recovering/Resolving]
  - Asthenia [Recovering/Resolving]
  - Oesophageal candidiasis [Recovered/Resolved]
